FAERS Safety Report 12172063 (Version 7)
Quarter: 2016Q4

REPORT INFORMATION
  Report Type: Spontaneous
  Country: US (occurrence: US)
  Receive Date: 20160311
  Receipt Date: 20161110
  Transmission Date: 20170207
  Serious: Yes (Other)
  Sender: FDA-Public Use
  Company Number: US-GLAXOSMITHKLINE-US2016GSK033600

PATIENT
  Age: 76 Year
  Sex: Female

DRUGS (4)
  1. ESCITALOPRAM [Suspect]
     Active Substance: ESCITALOPRAM OXALATE
     Indication: ANTIDEPRESSANT THERAPY
     Dosage: UNK
  2. TANZEUM [Suspect]
     Active Substance: ALBIGLUTIDE
     Dosage: 30 MG, WE
     Route: 042
     Dates: start: 201601
  3. TANZEUM [Suspect]
     Active Substance: ALBIGLUTIDE
     Indication: TYPE 2 DIABETES MELLITUS
     Dosage: 30 MG, WE
     Route: 042
     Dates: start: 20160304
  4. TANZEUM [Suspect]
     Active Substance: ALBIGLUTIDE
     Dosage: 30 MG, WE
     Route: 042
     Dates: start: 201607

REACTIONS (19)
  - Abdominal pain upper [Unknown]
  - Device use error [Unknown]
  - Labelled drug-disease interaction medication error [Unknown]
  - Stress [Unknown]
  - Urinary tract infection [Unknown]
  - Squamous cell carcinoma of skin [Unknown]
  - Weight increased [Unknown]
  - Product preparation error [Unknown]
  - Increased appetite [Not Recovered/Not Resolved]
  - Blood glucose increased [Unknown]
  - Accidental exposure to product [Unknown]
  - Pruritus [Unknown]
  - Skin burning sensation [Unknown]
  - Dry mouth [Unknown]
  - Device leakage [Unknown]
  - Hypophagia [Not Recovered/Not Resolved]
  - Limb operation [Unknown]
  - Headache [Unknown]
  - Ill-defined disorder [Not Recovered/Not Resolved]

NARRATIVE: CASE EVENT DATE: 20160304
